FAERS Safety Report 8831023 (Version 2)
Quarter: 2013Q1

REPORT INFORMATION
  Report Type: Spontaneous
  Country: US (occurrence: US)
  Receive Date: 20121008
  Receipt Date: 20130121
  Transmission Date: 20140127
  Serious: No
  Sender: FDA-Public Use
  Company Number: US-009507513-1210USA002401

PATIENT
  Age: 80 Year
  Sex: Female
  Weight: 52.61 kg

DRUGS (1)
  1. MIRALAX [Suspect]
     Indication: CONSTIPATION
     Dosage: 17 G, QD
     Route: 048
     Dates: start: 20120920, end: 20120922

REACTIONS (1)
  - Abdominal pain upper [Recovered/Resolved]
